FAERS Safety Report 9677927 (Version 5)
Quarter: 2014Q1

REPORT INFORMATION
  Report Type: Spontaneous
  Country: US (occurrence: US)
  Receive Date: 20131108
  Receipt Date: 20140321
  Transmission Date: 20141002
  Serious: Yes (Death, Hospitalization, Other)
  Sender: FDA-Public Use
  Company Number: US-PFIZER INC-2013130073

PATIENT
  Age: 43 Year
  Sex: Female

DRUGS (5)
  1. DILANTIN [Suspect]
     Indication: CONVULSION
     Dosage: 100 MG, 3X/DAY
     Route: 048
     Dates: start: 20040308
  2. DILANTIN [Suspect]
     Dosage: 125 MG, 3X/DAY
     Route: 048
     Dates: start: 20040319
  3. DILANTIN [Suspect]
     Dosage: 130 MG, 3X/DAY
     Route: 048
     Dates: start: 20040322
  4. DILANTIN-125 [Suspect]
     Indication: CONVULSION
     Dosage: 125 MG, 3X/DAY
     Route: 048
     Dates: start: 20040319
  5. DILANTIN [Suspect]
     Indication: CONVULSION
     Dosage: 100 MG, UNK
     Route: 042
     Dates: start: 20040404

REACTIONS (2)
  - Stevens-Johnson syndrome [Fatal]
  - Toxic epidermal necrolysis [Fatal]
